FAERS Safety Report 19238800 (Version 2)
Quarter: 2021Q4

REPORT INFORMATION
  Report Type: Spontaneous
  Country: GB (occurrence: GB)
  Receive Date: 20210510
  Receipt Date: 20211119
  Transmission Date: 20220303
  Serious: Yes (Other)
  Sender: FDA-Public Use
  Company Number: None

PATIENT
  Age: 33 Year
  Sex: Female
  Weight: 82.55 kg

DRUGS (2)
  1. CLARITHROMYCIN [Suspect]
     Active Substance: CLARITHROMYCIN
     Indication: Sinusitis
     Dosage: 500 MILLIGRAM, BID, 500MG 2 TIMES DAILY
     Route: 048
     Dates: start: 20210428, end: 20210502
  2. MOMETASONE FUROATE [Concomitant]
     Active Substance: MOMETASONE FUROATE
     Indication: Ill-defined disorder
     Dosage: UNK

REACTIONS (4)
  - Panic attack [Not Recovered/Not Resolved]
  - Anxiety [Unknown]
  - Sleep disorder [Unknown]
  - Decreased appetite [Unknown]

NARRATIVE: CASE EVENT DATE: 20210430
